FAERS Safety Report 4489394-9 (Version None)
Quarter: 2004Q4

REPORT INFORMATION
  Report Type: 
  Country: None (occurrence: None)
  Receive Date: 20041025
  Receipt Date: 20041015
  Transmission Date: 20050328
  Serious: Yes (Hospitalization)
  Sender: FDA-Public Use
  Company Number: KII-2004-0013620

PATIENT
  Age: 18 Month
  Sex: Female

DRUGS (4)
  1. OXYCODONE HCL [Suspect]
     Dosage: ORAL
     Route: 048
     Dates: start: 20040912, end: 20040912
  2. METHADONE (METHADONE) [Suspect]
     Dosage: ORAL
     Route: 048
     Dates: start: 20040912, end: 20040912
  3. BENZODIAZEPINE (DERIVATES) [Suspect]
     Dosage: ORAL
     Route: 048
     Dates: start: 20040912, end: 20040912
  4. (ANTIDEPRESSANTS) [Suspect]
     Dosage: ORAL
     Route: 048
     Dates: start: 20040912, end: 20040902

REACTIONS (3)
  - ACCIDENTAL EXPOSURE [None]
  - GAIT DISTURBANCE [None]
  - RESPIRATORY RATE DECREASED [None]
